FAERS Safety Report 8602682-7 (Version None)
Quarter: 2012Q3

REPORT INFORMATION
  Report Type: 
  Country: None (occurrence: None)
  Receive Date: 20120817
  Receipt Date: 20120810
  Transmission Date: 20120928
  Serious: Yes (Other)
  Sender: FDA-Public Use
  Company Number: CA-PFIZER INC-2012195753

PATIENT
  Age: 60 Year
  Sex: Female
  Weight: 150 kg

DRUGS (8)
  1. SEROQUEL XR [Concomitant]
     Indication: COGNITIVE DISORDER
     Dosage: 50 MG, 1X/DAY
     Dates: start: 20110201
  2. CYMBALTA [Concomitant]
     Dosage: 60 MG, UNK
  3. COVERSYL PLUS [Concomitant]
     Dosage: 4/1.25MG ONCE A DAY
  4. LYRICA [Suspect]
     Indication: FIBROMYALGIA
     Dosage: 75 MG, 1X/DAY
     Route: 048
     Dates: start: 20100901
  5. LYRICA [Suspect]
     Dosage: 375 MG, DAILY  ( 2CAPSULES OF 75MG IN THE MORNING AND 3 CAPSULES OF 75MG AT NIGHTTIME
     Route: 048
     Dates: start: 20110601
  6. LYRICA [Suspect]
     Dosage: 75 MG, 2X/DAY
     Route: 048
  7. DEXILANT [Concomitant]
     Indication: GASTRIC DISORDER
     Dosage: UNK
  8. CELEBREX [Concomitant]
     Dosage: 200 MG, UNK

REACTIONS (2)
  - BRADYPHRENIA [None]
  - HYPOREFLEXIA [None]
